FAERS Safety Report 9641086 (Version 1)
Quarter: 2013Q4

REPORT INFORMATION
  Report Type: Spontaneous
  Country: US (occurrence: US)
  Receive Date: 20131023
  Receipt Date: 20131023
  Transmission Date: 20140711
  Serious: No
  Sender: FDA-Public Use
  Company Number: US-ABBVIE-13P-163-1110389-00

PATIENT
  Sex: 0

DRUGS (1)
  1. LUPRON DEPOT [Suspect]
     Indication: BREAST CANCER

REACTIONS (2)
  - Device malfunction [Unknown]
  - Drug dose omission [Unknown]
